FAERS Safety Report 6716017-8 (Version None)
Quarter: 2010Q2

REPORT INFORMATION
  Report Type: 
  Country: None (occurrence: None)
  Receive Date: 20100507
  Receipt Date: 20100429
  Transmission Date: 20101027
  Serious: Yes (Other)
  Sender: FDA-Public Use
  Company Number: B0651676A

PATIENT
  Sex: Female

DRUGS (1)
  1. ALLI [Suspect]
     Route: 065

REACTIONS (1)
  - INTESTINAL HAEMORRHAGE [None]
